FAERS Safety Report 10202837 (Version 1)
Quarter: 2014Q2

REPORT INFORMATION
  Report Type: Spontaneous
  Country: US (occurrence: US)
  Receive Date: 20140522
  Receipt Date: 20140522
  Transmission Date: 20141212
  Serious: No
  Sender: FDA-Public Use
  Company Number: US-SA-2014SA037577

PATIENT
  Age: 51 Year
  Sex: Female

DRUGS (1)
  1. LANTUS [Suspect]
     Indication: TYPE 2 DIABETES MELLITUS
     Dosage: DOSE:23 UNIT(S)
     Route: 065

REACTIONS (5)
  - Malaise [Unknown]
  - Amnesia [Unknown]
  - Arthralgia [Unknown]
  - Asthenia [Unknown]
  - Abdominal discomfort [Unknown]
